FAERS Safety Report 8265244-X (Version None)
Quarter: 2012Q2

REPORT INFORMATION
  Report Type: 
  Country: None (occurrence: None)
  Receive Date: 20120406
  Receipt Date: 20120327
  Transmission Date: 20120825
  Serious: Yes (Hospitalization, Other)
  Sender: FDA-Public Use
  Company Number: US-ELI_LILLY_AND_COMPANY-US201112005386

PATIENT
  Sex: Female

DRUGS (2)
  1. FORTEO [Suspect]
     Indication: OSTEOPOROSIS
     Dosage: 20 UG, QD
     Route: 065
     Dates: start: 20110827
  2. FORTEO [Suspect]
     Dosage: 20 UG, QD

REACTIONS (5)
  - FALL [None]
  - MENTAL IMPAIRMENT [None]
  - RIB FRACTURE [None]
  - DYSPNOEA [None]
  - TREMOR [None]
